FAERS Safety Report 6165336-5 (Version None)
Quarter: 2009Q2

REPORT INFORMATION
  Report Type: 
  Country: None (occurrence: None)
  Receive Date: 20090421
  Receipt Date: 20090421
  Transmission Date: 20091009
  Serious: No
  Sender: FDA-Public Use
  Company Number: None

PATIENT
  Sex: Female
  Weight: 55.91 kg

DRUGS (9)
  1. NORTRIPTYLINE HCL [Suspect]
     Dosage: 10MG CAPSULE 30 MG QHS ORAL
     Route: 048
     Dates: start: 20090120, end: 20090420
  2. ALPRAZOLAM [Concomitant]
  3. DOSTINEX [Concomitant]
  4. LIDOCAINE [Concomitant]
  5. NEURONTIN [Concomitant]
  6. OMEPRAZOLE [Concomitant]
  7. RANITIDINE HCL [Concomitant]
  8. SYNALAR [Concomitant]
  9. WESTCORT [Concomitant]

REACTIONS (1)
  - INSOMNIA [None]
